FAERS Safety Report 20602844 (Version 1)
Quarter: 2022Q1

REPORT INFORMATION
  Report Type: Spontaneous
  Country: US (occurrence: US)
  Receive Date: 20220316
  Receipt Date: 20220316
  Transmission Date: 20220423
  Serious: Yes (Hospitalization)
  Sender: FDA-Public Use
  Company Number: US-GW PHARMA-202203USGW01290

PATIENT
  Sex: Female

DRUGS (1)
  1. EPIDIOLEX [Suspect]
     Active Substance: CANNABIDIOL
     Indication: Seizure
     Dosage: 600 MILLIGRAM, BID (DOSE INCREASE) (FIRST SHIPPED ON 04 JUN 2021)
     Route: 048
     Dates: start: 202106

REACTIONS (1)
  - Dysphagia [Unknown]
